FAERS Safety Report 23136280 (Version 3)
Quarter: 2023Q4

REPORT INFORMATION
  Report Type: Spontaneous
  Country: CN (occurrence: CN)
  Receive Date: 20231102
  Receipt Date: 20231115
  Transmission Date: 20240110
  Serious: Yes (Hospitalization, Other)
  Sender: FDA-Public Use
  Company Number: CN-NOVOPROD-1131908

PATIENT
  Age: 22 Year
  Sex: Female
  Weight: 75 kg

DRUGS (2)
  1. NOVORAPID [Suspect]
     Active Substance: INSULIN ASPART
     Indication: Type 1 diabetes mellitus
     Dosage: 26 IU, QD(8 U IN THE MORNING, 10 U AT NOON AND 8 U IN THE EVENING)
  2. TRESIBA [Suspect]
     Active Substance: INSULIN DEGLUDEC
     Indication: Type 1 diabetes mellitus
     Dosage: 18 IU, QD(BEFORE SLEEP AT NIGHT)

REACTIONS (3)
  - Diabetic ketoacidosis [Recovered/Resolved]
  - Device information output issue [Unknown]
  - Product storage error [Unknown]

NARRATIVE: CASE EVENT DATE: 20231013
